FAERS Safety Report 4379168-1 (Version None)
Quarter: 2004Q2

REPORT INFORMATION
  Report Type: 
  Country: None (occurrence: None)
  Receive Date: 20040614
  Receipt Date: 20040526
  Transmission Date: 20050107
  Serious: Yes (Other)
  Sender: FDA-Public Use
  Company Number: 200412620BCC

PATIENT
  Age: 73 Year
  Sex: Female
  Weight: 72.5755 kg

DRUGS (4)
  1. ASPIRIN [Suspect]
     Indication: ARTHRITIS
     Dosage: 650-1300 MG, QD, ORAL
     Route: 048
     Dates: end: 20040510
  2. HYDROCHLOROTHIAZIDE [Concomitant]
  3. VALIUM [Concomitant]
  4. ANTACID ^WALGREENS^ [Concomitant]

REACTIONS (6)
  - DYSGEUSIA [None]
  - FALL [None]
  - HIP FRACTURE [None]
  - HYPOAESTHESIA [None]
  - PARALYSIS [None]
  - TONGUE BLISTERING [None]
